FAERS Safety Report 15714691 (Version 1)
Quarter: 2018Q4

REPORT INFORMATION
  Report Type: Spontaneous
  Country: US (occurrence: US)
  Receive Date: 20181212
  Receipt Date: 20181212
  Transmission Date: 20190205
  Serious: Yes (Disabling)
  Sender: FDA-Public Use
  Company Number: None

PATIENT
  Age: 62 Year
  Sex: Female
  Weight: 65.25 kg

DRUGS (5)
  1. CENTRUM MULTI-VITAMIN FOR WOMEN OVER 50 [Concomitant]
  2. ESZOPICLONE. [Concomitant]
     Active Substance: ESZOPICLONE
  3. CLONAZEPAM 2MG [Suspect]
     Active Substance: CLONAZEPAM
     Indication: SEDATION
     Dosage: ?          QUANTITY:1 CAPSULE(S);?
     Route: 048
     Dates: start: 20181117, end: 20181119
  4. EFFEXOR XL [Concomitant]
  5. SEROQUEL [Concomitant]
     Active Substance: QUETIAPINE FUMARATE

REACTIONS (4)
  - Insomnia [None]
  - Product formulation issue [None]
  - Drug ineffective [None]
  - Product substitution issue [None]

NARRATIVE: CASE EVENT DATE: 20181117
